FAERS Safety Report 12395558 (Version 5)
Quarter: 2018Q1

REPORT INFORMATION
  Report Type: Spontaneous
  Country: DE (occurrence: DE)
  Receive Date: 20160523
  Receipt Date: 20180103
  Transmission Date: 20180508
  Serious: Yes (Death, Hospitalization, Other)
  Sender: FDA-Public Use
  Company Number: DE-PFIZER INC-2016263222

PATIENT
  Age: 38 Year
  Sex: Female
  Weight: 97 kg

DRUGS (10)
  1. LEMTRADA [Suspect]
     Active Substance: ALEMTUZUMAB
     Indication: MULTIPLE SCLEROSIS
     Dosage: 12 MG, 1-0-0
     Route: 042
     Dates: start: 20160418, end: 20160420
  2. TAVANIC [Concomitant]
     Active Substance: LEVOFLOXACIN
     Indication: URINARY TRACT INFECTION
     Dosage: 500 MG, 1-0-0
     Route: 048
     Dates: start: 20160418, end: 20160420
  3. ACICLOVIR [Concomitant]
     Active Substance: ACYCLOVIR
  4. REKAWAN [Concomitant]
     Active Substance: POTASSIUM CHLORIDE
  5. CETIRIZIN [Concomitant]
     Active Substance: CETIRIZINE HYDROCHLORIDE
  6. MONO-EMBOLEX [Suspect]
     Active Substance: CERTOPARIN SODIUM
     Dosage: 3000 IU, UNK
  7. RANITIDINE RATIOPHARM [Concomitant]
     Indication: SUPPORTIVE CARE
     Dosage: 50MG/5ML, 1-0-0
     Route: 042
     Dates: start: 20160418, end: 20160420
  8. METHYLPREDNISOLONE SODIUM SUCCINATE. [Suspect]
     Active Substance: METHYLPREDNISOLONE SODIUM SUCCINATE
     Indication: SUPPORTIVE CARE
     Dosage: 1 G, 1-0-0
     Route: 042
     Dates: start: 20160418, end: 20160420
  9. PARACETAMOL [Suspect]
     Active Substance: ACETAMINOPHEN
  10. TAVEGIL [Concomitant]
     Active Substance: CLEMASTINE FUMARATE
     Indication: SUPPORTIVE CARE
     Dosage: AMPULS, 1-0-0
     Route: 042
     Dates: start: 20160418, end: 20160420

REACTIONS (24)
  - Hypertension [Fatal]
  - Intracranial pressure increased [Fatal]
  - Heart rate decreased [Fatal]
  - Chronic fatigue syndrome [Fatal]
  - Infusion related reaction [Fatal]
  - Brain oedema [Fatal]
  - Nausea [Fatal]
  - Acute disseminated encephalomyelitis [Fatal]
  - Hydrocephalus [Fatal]
  - Cytokine storm [Fatal]
  - Organ failure [Fatal]
  - Seizure [Fatal]
  - Blood disorder [Fatal]
  - Cerebral hypoperfusion [Fatal]
  - Feeling hot [Fatal]
  - Cerebral ventricular rupture [Fatal]
  - Cerebral haemorrhage [Fatal]
  - Brain death [Fatal]
  - Bradycardia [Fatal]
  - Vasculitis necrotising [Fatal]
  - Mydriasis [Fatal]
  - Headache [Fatal]
  - Vomiting [Fatal]
  - Loss of consciousness [Fatal]

NARRATIVE: CASE EVENT DATE: 201604
